FAERS Safety Report 20451275 (Version 2)
Quarter: 2022Q1

REPORT INFORMATION
  Report Type: Spontaneous
  Country: US (occurrence: US)
  Receive Date: 20220209
  Receipt Date: 20220304
  Transmission Date: 20220424
  Serious: No
  Sender: FDA-Public Use
  Company Number: US-BRISTOL-MYERS SQUIBB COMPANY-BMS-2022-012890

PATIENT
  Age: 60 Year
  Sex: Female
  Weight: 117.93 kg

DRUGS (2)
  1. ELIQUIS [Suspect]
     Active Substance: APIXABAN
     Indication: Deep vein thrombosis
     Dosage: 5 MILLIGRAM, BID
     Route: 048
     Dates: start: 202012, end: 202108
  2. ELIQUIS [Suspect]
     Active Substance: APIXABAN
     Dosage: 5 MILLIGRAM, BID
     Route: 048
     Dates: start: 20220226

REACTIONS (8)
  - Headache [Unknown]
  - Pain [Not Recovered/Not Resolved]
  - Influenza [Unknown]
  - Nausea [Unknown]
  - Alopecia [Unknown]
  - Vertigo positional [Recovered/Resolved]
  - Prescribed underdose [Unknown]
  - Abdominal discomfort [Unknown]

NARRATIVE: CASE EVENT DATE: 20201201
